FAERS Safety Report 12701307 (Version 2)
Quarter: 2016Q3

REPORT INFORMATION
  Report Type: Report from Study
  Country: GB (occurrence: GB)
  Receive Date: 20160831
  Receipt Date: 20160927
  Transmission Date: 20161109
  Serious: Yes (Other)
  Sender: FDA-Public Use
  Company Number: GB-ORION CORPORATION ORION PHARMA-TREX2016-0418

PATIENT
  Sex: Female

DRUGS (4)
  1. TOFACITINIB [Suspect]
     Active Substance: TOFACITINIB
     Indication: PSORIATIC ARTHROPATHY
     Route: 065
     Dates: start: 20141010
  2. LANSOPRAZOLE. [Concomitant]
     Active Substance: LANSOPRAZOLE
     Indication: PROPHYLAXIS
     Route: 065
     Dates: start: 20140320
  3. FOLIC ACID. [Concomitant]
     Active Substance: FOLIC ACID
     Indication: PSORIATIC ARTHROPATHY
     Route: 065
     Dates: start: 20140320, end: 20160229
  4. NAPROXEN. [Concomitant]
     Active Substance: NAPROXEN
     Indication: PSORIATIC ARTHROPATHY
     Route: 065
     Dates: start: 20140320

REACTIONS (3)
  - Abortion spontaneous [Not Recovered/Not Resolved]
  - Maternal exposure before pregnancy [Unknown]
  - Exposure via partner [Unknown]

NARRATIVE: CASE EVENT DATE: 20160224
